FAERS Safety Report 8810440 (Version 1)
Quarter: 2012Q4

REPORT INFORMATION
  Report Type: 
  Country: US (occurrence: US)
  Receive Date: 20120927
  Receipt Date: 20120927
  Transmission Date: 20130627
  Serious: No
  Sender: FDA-Public Use
  Company Number: US-009507513-1209USA007555

PATIENT
  Sex: Female

DRUGS (6)
  1. VICTRELIS [Suspect]
     Dosage: 800 mg, tid
     Route: 048
  2. PEGINTRON [Suspect]
  3. REBETOL [Suspect]
  4. ABILIFY [Concomitant]
  5. PAXIL [Concomitant]
  6. ATIVAN [Concomitant]

REACTIONS (1)
  - Nausea [Unknown]
